FAERS Safety Report 9455559 (Version 1)
Quarter: 2013Q3

REPORT INFORMATION
  Report Type: Spontaneous
  Country: US (occurrence: US)
  Receive Date: 20130813
  Receipt Date: 20130813
  Transmission Date: 20140515
  Serious: Yes (Other)
  Sender: FDA-Public Use
  Company Number: US-PFIZER INC-2013232131

PATIENT
  Sex: Male
  Weight: 95.24 kg

DRUGS (4)
  1. VIAGRA [Suspect]
     Indication: ERECTILE DYSFUNCTION
     Dosage: 100 MG, FOUR TIMES A WEEK
     Route: 048
  2. VIAGRA [Suspect]
     Dosage: 3 TABLETS OF 100MG WITHIN 9 HOURS
     Route: 048
     Dates: start: 201308
  3. VIAGRA [Suspect]
     Dosage: UNK
     Route: 048
     Dates: end: 20130802
  4. PRILOSEC [Concomitant]
     Indication: GASTROOESOPHAGEAL REFLUX DISEASE
     Dosage: 20 MG, 2X/DAY

REACTIONS (5)
  - Incorrect dose administered [Unknown]
  - Urinary retention [Recovered/Resolved]
  - Blood potassium decreased [Unknown]
  - Hypoaesthesia [Unknown]
  - Paraesthesia [Unknown]
